FAERS Safety Report 7418365-5 (Version None)
Quarter: 2011Q2

REPORT INFORMATION
  Report Type: 
  Country: None (occurrence: None)
  Receive Date: 20110415
  Receipt Date: 20110408
  Transmission Date: 20111010
  Serious: Yes (Hospitalization)
  Sender: FDA-Public Use
  Company Number: B0707500A

PATIENT
  Age: 67 Year
  Weight: 67.8 kg

DRUGS (1)
  1. VALACYCLOVIR [Suspect]
     Indication: HERPES ZOSTER
     Dosage: 500MG TWICE PER DAY
     Route: 048

REACTIONS (5)
  - OVERDOSE [None]
  - INSOMNIA [None]
  - NEUROTOXICITY [None]
  - MYALGIA [None]
  - HALLUCINATION [None]
